FAERS Safety Report 7627429-2 (Version None)
Quarter: 2011Q3

REPORT INFORMATION
  Report Type: 
  Country: None (occurrence: None)
  Receive Date: 20110721
  Receipt Date: 20110718
  Transmission Date: 20111222
  Serious: No
  Sender: FDA-Public Use
  Company Number: US-PFIZER INC-2011162752

PATIENT
  Sex: Female
  Weight: 69.8 kg

DRUGS (6)
  1. PREMARIN [Suspect]
     Indication: HORMONE REPLACEMENT THERAPY
     Dosage: 0.625 MG, 1X/DAY
     Route: 048
     Dates: end: 20100101
  2. OLMESARTAN [Concomitant]
     Indication: HYPERTENSION
     Dosage: UNK
  3. METFORMIN [Concomitant]
     Indication: TYPE 2 DIABETES MELLITUS
     Dosage: UNK
  4. PREMARIN [Suspect]
     Dosage: 0.3 MG, UNK
     Route: 048
     Dates: start: 20110522
  5. CADUET [Concomitant]
     Indication: HYPERTENSION
     Dosage: UNK
  6. PREMARIN [Suspect]
     Dosage: UNK
     Dates: end: 20110101

REACTIONS (4)
  - ALOPECIA [None]
  - WEIGHT INCREASED [None]
  - ABDOMINAL DISTENSION [None]
  - FLUID RETENTION [None]
